FAERS Safety Report 4611620-3 (Version None)
Quarter: 2005Q1

REPORT INFORMATION
  Report Type: 
  Country: None (occurrence: None)
  Receive Date: 20050317
  Receipt Date: 20050309
  Transmission Date: 20050727
  Serious: Yes (Other)
  Sender: FDA-Public Use
  Company Number: FI-ROCHE-397811

PATIENT
  Age: 22 Year
  Sex: Female

DRUGS (1)
  1. ROCEPHALIN [Suspect]
     Indication: PYELONEPHRITIS
     Dosage: FORM REPORTED AS INFUSION DOSING REGIMEN: REPORTED AS: 1GX1
     Route: 042
     Dates: start: 20050302, end: 20050302

REACTIONS (1)
  - URTICARIA [None]
